FAERS Safety Report 11429565 (Version 1)
Quarter: 2015Q3

REPORT INFORMATION
  Report Type: Spontaneous
  Country: US (occurrence: US)
  Receive Date: 20150828
  Receipt Date: 20150828
  Transmission Date: 20151125
  Serious: No
  Sender: FDA-Public Use
  Company Number: US-ROCHE-1163598

PATIENT
  Sex: Male

DRUGS (4)
  1. RIBAVIRIN. [Suspect]
     Active Substance: RIBAVIRIN
     Indication: HEPATITIS C
     Route: 065
     Dates: start: 20121111
  2. TELAPREVIR [Concomitant]
     Active Substance: TELAPREVIR
     Route: 065
  3. FUROSEMIDE. [Concomitant]
     Active Substance: FUROSEMIDE
     Indication: OEDEMA
  4. PEGASYS [Suspect]
     Active Substance: PEGINTERFERON ALFA-2A
     Indication: HEPATITIS C
     Route: 058
     Dates: start: 20121111

REACTIONS (16)
  - Red blood cell count decreased [Unknown]
  - Fatigue [Unknown]
  - Muscle spasms [Unknown]
  - Dyspnoea [Unknown]
  - Poor quality sleep [Unknown]
  - Contusion [Recovered/Resolved]
  - Platelet count decreased [Unknown]
  - White blood cell count decreased [Unknown]
  - Headache [Unknown]
  - Pruritus generalised [Recovering/Resolving]
  - Peripheral coldness [Unknown]
  - Anxiety [Unknown]
  - Hypoaesthesia [Unknown]
  - Joint swelling [Unknown]
  - Pyrexia [Unknown]
  - Paraesthesia [Unknown]
